FAERS Safety Report 6770373-3 (Version None)
Quarter: 2010Q2

REPORT INFORMATION
  Report Type: 
  Country: None (occurrence: None)
  Receive Date: 20100615
  Receipt Date: 20100604
  Transmission Date: 20101027
  Serious: Yes (Hospitalization)
  Sender: FDA-Public Use
  Company Number: JP-PFIZER INC-2010073365

PATIENT
  Age: 83 Year
  Sex: Male

DRUGS (6)
  1. ESTRACYT [Suspect]
     Dosage: 626.8 MG/DAY
     Route: 048
     Dates: start: 20100203, end: 20100317
  2. WARFARIN POTASSIUM [Concomitant]
     Dosage: 1 MG/DAY
     Route: 048
     Dates: start: 20100203
  3. FAMOTIDINE [Concomitant]
     Dosage: 40 MG/DAY
     Route: 048
     Dates: start: 20100203
  4. NAFTOPIDIL [Concomitant]
     Dosage: 50 MG/DAY
     Route: 048
  5. VESICARE [Concomitant]
     Dosage: 5 MG/DAY
     Route: 048
  6. PRIMPERAN [Concomitant]
     Dosage: 10 MG/DAY
     Route: 048
     Dates: start: 20100203

REACTIONS (3)
  - GASTRITIS [None]
  - HEPATIC FUNCTION ABNORMAL [None]
  - PRURITUS [None]
